FAERS Safety Report 22646648 (Version 1)
Quarter: 2023Q2

REPORT INFORMATION
  Report Type: Spontaneous
  Country: JP (occurrence: JP)
  Receive Date: 20230627
  Receipt Date: 20230627
  Transmission Date: 20230721
  Serious: Yes (Hospitalization)
  Sender: FDA-Public Use
  Company Number: JP-ONO-2023JP016161

PATIENT
  Age: 80 Year
  Sex: Male

DRUGS (1)
  1. OPDIVO [Suspect]
     Active Substance: NIVOLUMAB
     Indication: Oesophageal carcinoma
     Dosage: UNK
     Route: 041

REACTIONS (6)
  - Axillary pain [Unknown]
  - Dehydration [Unknown]
  - Feeding disorder [Unknown]
  - Dysstasia [Unknown]
  - Pyrexia [Unknown]
  - Dysphagia [Unknown]

NARRATIVE: CASE EVENT DATE: 20230617
